FAERS Safety Report 23284183 (Version 1)
Quarter: 2023Q4

REPORT INFORMATION
  Report Type: Spontaneous
  Country: US (occurrence: None)
  Receive Date: 20231211
  Receipt Date: 20231211
  Transmission Date: 20240110
  Serious: Yes (Death)
  Sender: FDA-Public Use
  Company Number: None

PATIENT
  Age: 64 Year
  Sex: Male

DRUGS (1)
  1. RYDAPT [Suspect]
     Active Substance: MIDOSTAURIN
     Indication: Acute myeloid leukaemia
     Dosage: 25MG 2 BID DAYS 8 THRU 21 OF 28 DAY  ORAL TABLETS?
     Route: 048
     Dates: start: 20231118, end: 20231203

REACTIONS (1)
  - Acute myeloid leukaemia [None]

NARRATIVE: CASE EVENT DATE: 20231203
